FAERS Safety Report 8820904 (Version 3)
Quarter: 2012Q4

REPORT INFORMATION
  Report Type: 
  Country: JP (occurrence: JP)
  Receive Date: 20121002
  Receipt Date: 20121221
  Transmission Date: 20130627
  Serious: Yes (Hospitalization)
  Sender: FDA-Public Use
  Company Number: JP-ELI_LILLY_AND_COMPANY-JP201208006156

PATIENT
  Age: 85 Year
  Sex: Female

DRUGS (3)
  1. FORTEO [Suspect]
     Dosage: UNK UNK, each morning
     Route: 058
     Dates: start: 20120806, end: 20120902
  2. FORTEO [Suspect]
     Dosage: UNK UNK, qd
     Route: 058
     Dates: start: 20120920
  3. FORTEO [Suspect]
     Route: 058

REACTIONS (3)
  - Malaise [Unknown]
  - Injection site bruising [Unknown]
  - Viral infection [Unknown]
